FAERS Safety Report 5717857-4 (Version None)
Quarter: 2008Q2

REPORT INFORMATION
  Report Type: 
  Country: None (occurrence: None)
  Receive Date: 20080425
  Receipt Date: 20080416
  Transmission Date: 20081010
  Serious: Yes (Hospitalization)
  Sender: FDA-Public Use
  Company Number: GB-JNJFOC-20080402267

PATIENT
  Age: 17 Year
  Sex: Male

DRUGS (4)
  1. CONCERTA [Suspect]
     Indication: ATTENTION DEFICIT/HYPERACTIVITY DISORDER
     Route: 048
  2. PIZOTIFEN [Concomitant]
     Indication: MIGRAINE
     Route: 065
  3. PIZOTIFEN [Concomitant]
     Indication: HEADACHE
     Route: 065
  4. RITALIN [Concomitant]
     Indication: ATTENTION DEFICIT/HYPERACTIVITY DISORDER
     Route: 065

REACTIONS (7)
  - DEHYDRATION [None]
  - DIZZINESS [None]
  - GROWTH ACCELERATED [None]
  - HEADACHE [None]
  - HYPOTENSION [None]
  - MIGRAINE [None]
  - UNDERWEIGHT [None]
